FAERS Safety Report 5302202-9 (Version None)
Quarter: 2007Q2

REPORT INFORMATION
  Report Type: 
  Country: None (occurrence: None)
  Receive Date: 20070419
  Receipt Date: 20070410
  Transmission Date: 20071010
  Serious: Yes (Hospitalization)
  Sender: FDA-Public Use
  Company Number: CG-MERCK-0704USA01658

PATIENT
  Age: 32 Year
  Sex: Male

DRUGS (1)
  1. STROMECTOL [Suspect]
     Route: 048
     Dates: start: 20060520, end: 20060520

REACTIONS (6)
  - BACK PAIN [None]
  - HEADACHE [None]
  - MYALGIA [None]
  - NECK PAIN [None]
  - OCULAR HYPERAEMIA [None]
  - PYREXIA [None]
